FAERS Safety Report 6914460-5 (Version None)
Quarter: 2010Q3

REPORT INFORMATION
  Report Type: 
  Country: None (occurrence: None)
  Receive Date: 20100805
  Receipt Date: 20100805
  Transmission Date: 20110219
  Serious: Yes (Other)
  Sender: FDA-Public Use
  Company Number: None

PATIENT
  Age: 56 Year
  Sex: Female
  Weight: 51.7101 kg

DRUGS (1)
  1. ACTONEL [Suspect]
     Indication: OSTEOPENIA
     Dosage: 150 MG 1X/MONTH PO, ONCE
     Route: 048
     Dates: start: 20100731, end: 20100731

REACTIONS (9)
  - ARTHRALGIA [None]
  - CHEST DISCOMFORT [None]
  - CHEST PAIN [None]
  - COLD SWEAT [None]
  - DRUG EFFECT DECREASED [None]
  - DYSPEPSIA [None]
  - HYPERHIDROSIS [None]
  - MYALGIA [None]
  - PAIN [None]
